FAERS Safety Report 8313825-7 (Version None)
Quarter: 2012Q2

REPORT INFORMATION
  Report Type: 
  Country: None (occurrence: None)
  Receive Date: 20120426
  Receipt Date: 20120416
  Transmission Date: 20120825
  Serious: Yes (Other)
  Sender: FDA-Public Use
  Company Number: US-JNJFOC-20120300434

PATIENT
  Sex: Female
  Weight: 113.4 kg

DRUGS (10)
  1. REMICADE [Suspect]
     Route: 042
     Dates: start: 20120207
  2. EFFEXOR [Concomitant]
     Route: 065
  3. REMICADE [Suspect]
     Indication: RHEUMATOID ARTHRITIS
     Dosage: 5MG/KG
     Route: 042
     Dates: start: 20111122
  4. MULTI-VITAMINS [Concomitant]
     Route: 065
  5. REMICADE [Suspect]
     Route: 042
     Dates: start: 20111206
  6. LIPITOR [Concomitant]
     Route: 065
  7. ZYRTEC [Concomitant]
     Route: 065
  8. VOLTAREN [Concomitant]
     Route: 061
  9. METHOTREXATE [Concomitant]
     Route: 065
  10. FOLIC ACID [Concomitant]
     Route: 065

REACTIONS (9)
  - INFUSION RELATED REACTION [None]
  - HYPERTENSION [None]
  - ANXIETY [None]
  - VOMITING [None]
  - HEADACHE [None]
  - CHEST PAIN [None]
  - DYSPNOEA [None]
  - FLUSHING [None]
  - NAUSEA [None]
